FAERS Safety Report 8434371-6 (Version None)
Quarter: 2012Q2

REPORT INFORMATION
  Report Type: 
  Country: None (occurrence: None)
  Receive Date: 20120613
  Receipt Date: 20120604
  Transmission Date: 20120825
  Serious: Yes (Other)
  Sender: FDA-Public Use
  Company Number: US-ELI_LILLY_AND_COMPANY-US201206000894

PATIENT
  Sex: Female
  Weight: 107.94 kg

DRUGS (5)
  1. LISINOPRIL [Concomitant]
     Indication: HYPERTENSION
     Dosage: 10 MG, QD
     Route: 048
  2. BYDUREON [Suspect]
     Indication: TYPE 2 DIABETES MELLITUS
     Dosage: 2 MG, WEEKLY (1/W)
     Route: 058
     Dates: start: 20120401
  3. PROVENTIL                               /USA/ [Concomitant]
     Indication: ASTHMA
     Dosage: UNK, PRN
     Route: 055
  4. HYDROCHLOROTHIAZIDE [Concomitant]
     Indication: HYPERTENSION
     Dosage: 25 MG, QD
     Route: 048
  5. ASPIRIN [Concomitant]
     Dosage: 81 MG, QD
     Route: 048

REACTIONS (5)
  - DYSPNOEA [None]
  - CHOKING [None]
  - DYSPHAGIA [None]
  - ASTHMA [None]
  - COUGH [None]
